FAERS Safety Report 24299120 (Version 1)
Quarter: 2024Q3

REPORT INFORMATION
  Report Type: Spontaneous
  Country: CN (occurrence: CN)
  Receive Date: 20240909
  Receipt Date: 20240909
  Transmission Date: 20241017
  Serious: Yes (Hospitalization, Other)
  Sender: GE HEALTHCARE
  Company Number: CN-GE HEALTHCARE-2024CSU010036

PATIENT
  Age: 67 Year
  Sex: Female
  Weight: 54 kg

DRUGS (1)
  1. OMNIPAQUE [Suspect]
     Active Substance: IOHEXOL
     Indication: Computerised tomogram thorax
     Dosage: 100 ML, TOTAL
     Route: 013
     Dates: start: 20240821, end: 20240821

REACTIONS (3)
  - Mental disorder [Recovering/Resolving]
  - Disorganised speech [Recovering/Resolving]
  - Contrast encephalopathy [Recovering/Resolving]

NARRATIVE: CASE EVENT DATE: 20240821
